FAERS Safety Report 14694647 (Version 1)
Quarter: 2018Q1

REPORT INFORMATION
  Report Type: Report from Study
  Country: ES (occurrence: ES)
  Receive Date: 20180329
  Receipt Date: 20180329
  Transmission Date: 20180509
  Serious: Yes (Hospitalization)
  Sender: FDA-Public Use
  Company Number: ES-GILEAD-2018-0329754

PATIENT
  Age: 78 Year
  Sex: Male

DRUGS (9)
  1. NITROGLICERINA [Suspect]
     Active Substance: NITROGLYCERIN
     Indication: MYOCARDIAL ISCHAEMIA
     Route: 065
     Dates: start: 201405, end: 20161005
  2. ENALAPRIL MALEATE AND HYDROCHLOROTHIAZIDE [Concomitant]
     Active Substance: ENALAPRIL MALEATE\HYDROCHLOROTHIAZIDE
     Indication: HYPERTENSION
     Dosage: UNK
     Dates: start: 2011
  3. BRILIQUE [Suspect]
     Active Substance: TICAGRELOR
     Indication: MYOCARDIAL ISCHAEMIA
     Route: 065
     Dates: start: 20160909, end: 20161005
  4. LANTUS [Concomitant]
     Active Substance: INSULIN GLARGINE
     Indication: TYPE 2 DIABETES MELLITUS
     Dosage: UNK
     Dates: start: 201412
  5. FORXIGA [Concomitant]
     Active Substance: DAPAGLIFLOZIN
     Indication: TYPE 2 DIABETES MELLITUS
     Dosage: UNK
  6. OMEPRAZOLE. [Concomitant]
     Active Substance: OMEPRAZOLE
     Dosage: UNK
     Dates: start: 2011
  7. RANOLAZINE. [Suspect]
     Active Substance: RANOLAZINE
     Indication: MYOCARDIAL ISCHAEMIA
     Dosage: UNK
     Route: 065
     Dates: start: 201607, end: 20161005
  8. METFORMIN [Concomitant]
     Active Substance: METFORMIN HYDROCHLORIDE
     Indication: TYPE 2 DIABETES MELLITUS
     Dosage: UNK
     Dates: start: 2011
  9. ROSUVASTATIN. [Concomitant]
     Active Substance: ROSUVASTATIN
     Indication: DYSLIPIDAEMIA
     Dosage: UNK
     Dates: start: 201406

REACTIONS (4)
  - Dizziness [Recovered/Resolved]
  - Off label use [Recovered/Resolved]
  - Dyspnoea [Recovered/Resolved]
  - Hypoaesthesia [Recovered/Resolved]

NARRATIVE: CASE EVENT DATE: 201607
